FAERS Safety Report 6699795-6 (Version None)
Quarter: 2010Q2

REPORT INFORMATION
  Report Type: 
  Country: None (occurrence: None)
  Receive Date: 20100427
  Receipt Date: 20100427
  Transmission Date: 20101027
  Serious: Yes (Hospitalization)
  Sender: FDA-Public Use
  Company Number: None

PATIENT
  Age: 69 Year
  Sex: Female

DRUGS (10)
  1. ALEVE (CAPLET) [Suspect]
     Indication: ARTHRALGIA
     Dosage: UNKNOWN UNKNOWN PO, SEVERAL YEARS
     Route: 048
  2. PRINIVIL [Concomitant]
  3. ZOCOR [Concomitant]
  4. ELAVIL [Concomitant]
  5. LEVOTHROID [Concomitant]
  6. ULTRAM [Concomitant]
  7. ANTIVERT [Concomitant]
  8. MECLIZINE [Concomitant]
  9. LASIX [Concomitant]
  10. POTASSIUM CHLORIDE [Concomitant]

REACTIONS (5)
  - ANAEMIA [None]
  - DIZZINESS [None]
  - GASTRIC ULCER [None]
  - GASTROINTESTINAL HAEMORRHAGE [None]
  - HAEMORRHAGE [None]
